FAERS Safety Report 23544145 (Version 1)
Quarter: 2024Q1

REPORT INFORMATION
  Report Type: Spontaneous
  Country: US (occurrence: None)
  Receive Date: 20240216
  Receipt Date: 20240216
  Transmission Date: 20240409
  Serious: Yes (Hospitalization)
  Sender: FDA-Public Use
  Company Number: None

PATIENT
  Age: 76 Year
  Sex: Female
  Weight: 91.35 kg

DRUGS (13)
  1. JARDIANCE [Suspect]
     Active Substance: EMPAGLIFLOZIN
     Indication: Diabetes mellitus
     Dosage: OTHER QUANTITY : 90 TABLET(S);?
     Route: 048
  2. Omeprazale [Concomitant]
  3. BRILINTA [Concomitant]
     Active Substance: TICAGRELOR
  4. TORSEMIDE [Concomitant]
     Active Substance: TORSEMIDE
  5. BASAGLAR [Concomitant]
     Active Substance: INSULIN GLARGINE
  6. EDARBI [Concomitant]
     Active Substance: AZILSARTAN KAMEDOXOMIL
  7. WEGOVY [Concomitant]
     Active Substance: SEMAGLUTIDE
  8. KERENDIA [Concomitant]
     Active Substance: FINERENONE
  9. HUMALOG [Concomitant]
     Active Substance: INSULIN LISPRO
  10. VITAMIN E [Concomitant]
     Active Substance: .ALPHA.-TOCOPHEROL
  11. VITAMIN D [Concomitant]
     Active Substance: VITAMIN D NOS
  12. FISH OIL [Concomitant]
     Active Substance: FISH OIL
  13. Bayer Aspin Amitiza Cap [Concomitant]

REACTIONS (6)
  - Necrotising fasciitis [None]
  - Influenza like illness [None]
  - Wound [None]
  - Cognitive disorder [None]
  - Gait inability [None]
  - Visual impairment [None]

NARRATIVE: CASE EVENT DATE: 20231209
